FAERS Safety Report 21561945 (Version 4)
Quarter: 2022Q4

REPORT INFORMATION
  Report Type: Spontaneous
  Country: FR (occurrence: FR)
  Receive Date: 20221107
  Receipt Date: 20221115
  Transmission Date: 20230113
  Serious: Yes (Death, Other)
  Sender: FDA-Public Use
  Company Number: None

PATIENT
  Age: 29 Year
  Sex: Female
  Weight: 90 kg

DRUGS (11)
  1. TRIMEBUTINE MALEATE [Suspect]
     Active Substance: TRIMEBUTINE MALEATE
     Indication: Abdominal pain
     Dosage: 100MG IV AT 2:40 A.M AND 9:50 A.M
     Route: 042
     Dates: start: 20220202, end: 20220202
  2. TRIMEBUTINE MALEATE [Suspect]
     Active Substance: TRIMEBUTINE MALEATE
     Dosage: 100MG IV AT 9:59 A.M
     Route: 042
     Dates: start: 20220202, end: 20220202
  3. PANTOPRAZOLE [Suspect]
     Active Substance: PANTOPRAZOLE
     Dosage: 40 MILLIGRAM, QD
     Route: 048
     Dates: start: 20220203, end: 20220204
  4. ONDANSETRON [Suspect]
     Active Substance: ONDANSETRON
     Indication: Nausea
     Dosage: 4 MILLIGRAM; FREQ:3 {TOTAL}
     Route: 042
     Dates: start: 20220203, end: 20220204
  5. METRONIDAZOLE [Suspect]
     Active Substance: METRONIDAZOLE
     Indication: Colitis
     Dosage: 1000 MILLIGRAM, QD
     Route: 065
     Dates: start: 20220119, end: 20220203
  6. VANCOMYCIN [Suspect]
     Active Substance: VANCOMYCIN
     Indication: Clostridium difficile colitis
     Dosage: 3 DOSAGE FORM, SINGLE
     Route: 048
     Dates: start: 20220203, end: 20220204
  7. ACETAMINOPHEN [Suspect]
     Active Substance: ACETAMINOPHEN
     Indication: Abdominal pain
     Dosage: 2 GRAM, QD
     Route: 048
     Dates: start: 20220202, end: 20220204
  8. OFLOXACIN [Suspect]
     Active Substance: OFLOXACIN
     Indication: Colitis
     Dosage: 400 MILLIGRAM, QD
     Route: 065
     Dates: start: 20220119, end: 20220203
  9. PROPRANOLOL HYDROCHLORIDE [Suspect]
     Active Substance: PROPRANOLOL HYDROCHLORIDE
     Indication: Abdominal pain
     Dosage: 40 MG, 1X/DAY
     Route: 048
     Dates: start: 20220204, end: 20220204
  10. METOCLOPRAMIDE HYDROCHLORIDE [Concomitant]
     Active Substance: METOCLOPRAMIDE HYDROCHLORIDE
     Indication: Nausea
     Dosage: 10 MILLIGRAM, QD
     Route: 042
     Dates: start: 20220202, end: 20220202
  11. PHLOROGLUCINOL [Concomitant]
     Active Substance: PHLOROGLUCINOL
     Indication: Abdominal pain
     Dosage: 120 MILLIGRAM, QD
     Route: 042
     Dates: start: 20220202, end: 20220202

REACTIONS (3)
  - Cardio-respiratory arrest [Fatal]
  - Brain hypoxia [Fatal]
  - Tachycardia [Recovered/Resolved]

NARRATIVE: CASE EVENT DATE: 20220204
